FAERS Safety Report 15337986 (Version 1)
Quarter: 2018Q3

REPORT INFORMATION
  Report Type: Report from Study
  Country: None (occurrence: CO)
  Receive Date: 20180831
  Receipt Date: 20180831
  Transmission Date: 20181010
  Serious: Yes (Death, Other)
  Sender: FDA-Public Use
  Company Number: CO-ABBVIE-18S-036-2470818-00

PATIENT
  Age: 67 Year
  Sex: Female

DRUGS (1)
  1. ZEMPLAR [Suspect]
     Active Substance: PARICALCITOL
     Indication: HYPERPARATHYROIDISM SECONDARY
     Route: 042
     Dates: start: 20180705, end: 20180815

REACTIONS (3)
  - Fall [Unknown]
  - Cardio-respiratory arrest [Fatal]
  - Hip fracture [Unknown]

NARRATIVE: CASE EVENT DATE: 20180821
